FAERS Safety Report 10912910 (Version 1)
Quarter: 2015Q1

REPORT INFORMATION
  Report Type: Spontaneous
  Country: US (occurrence: None)
  Receive Date: 20150310
  Receipt Date: 20150310
  Transmission Date: 20150721
  Serious: Yes (Hospitalization)
  Sender: FDA-Public Use
  Company Number: US-LHC-2015028

PATIENT
  Age: 57 Year
  Sex: Male

DRUGS (1)
  1. OXYGEN. [Suspect]
     Active Substance: OXYGEN
     Indication: PRODUCT USED FOR UNKNOWN INDICATION
     Route: 055

REACTIONS (8)
  - Tachypnoea [None]
  - Diastolic dysfunction [None]
  - Hyperhidrosis [None]
  - Mental status changes [None]
  - Pulmonary oedema [None]
  - Hypoxia [None]
  - Sinus tachycardia [None]
  - Sputum abnormal [None]
